FAERS Safety Report 6815769-6 (Version None)
Quarter: 2010Q3

REPORT INFORMATION
  Report Type: 
  Country: None (occurrence: None)
  Receive Date: 20100704
  Receipt Date: 20100623
  Transmission Date: 20110219
  Serious: Yes (Other)
  Sender: FDA-Public Use
  Company Number: GB-BRISTOL-MYERS SQUIBB COMPANY-15173552

PATIENT
  Age: 2 Decade
  Sex: Female

DRUGS (1)
  1. GLUCOPHAGE [Suspect]
     Dosage: FORM SR
     Dates: start: 20100619

REACTIONS (2)
  - CONVULSION [None]
  - MEDICATION ERROR [None]
